FAERS Safety Report 10563101 (Version 1)
Quarter: 2014Q4

REPORT INFORMATION
  Report Type: Spontaneous
  Country: US (occurrence: None)
  Receive Date: 20141103
  Receipt Date: 20141103
  Transmission Date: 20150529
  Serious: No
  Sender: FDA-Public Use
  Company Number: None

PATIENT
  Age: 47 Year
  Sex: Female
  Weight: 95.26 kg

DRUGS (1)
  1. SOLODYN [Suspect]
     Active Substance: MINOCYCLINE HYDROCHLORIDE
     Indication: ROSACEA
     Dosage: 1 A DAY
     Dates: start: 20141017, end: 20141029

REACTIONS (6)
  - Arthralgia [None]
  - Peripheral swelling [None]
  - Musculoskeletal pain [None]
  - Pain in extremity [None]
  - Drug ineffective [None]
  - Drug effect decreased [None]

NARRATIVE: CASE EVENT DATE: 20141029
